FAERS Safety Report 22366753 (Version 1)
Quarter: 2023Q2

REPORT INFORMATION
  Report Type: Spontaneous
  Country: US (occurrence: US)
  Receive Date: 20230525
  Receipt Date: 20230525
  Transmission Date: 20230721
  Serious: Yes (Hospitalization, Other)
  Sender: FDA-Public Use
  Company Number: US-APOTEX-2023AP008348

PATIENT
  Age: 57 Year
  Sex: Male

DRUGS (3)
  1. GABAPENTIN [Suspect]
     Active Substance: GABAPENTIN
     Indication: Product used for unknown indication
     Dosage: 10 DOSAGE FORM
     Route: 048
  2. AMLODIPINE [Suspect]
     Active Substance: AMLODIPINE BESYLATE
     Indication: Product used for unknown indication
     Dosage: 20 DOSAGE FORM
     Route: 048
  3. BENAZEPRIL [Suspect]
     Active Substance: BENAZEPRIL HYDROCHLORIDE
     Indication: Product used for unknown indication
     Dosage: 20 DOSAGE FORM
     Route: 048

REACTIONS (10)
  - Suicide attempt [Recovering/Resolving]
  - Intentional overdose [Recovering/Resolving]
  - Distributive shock [Recovering/Resolving]
  - Oropharyngeal oedema [Recovering/Resolving]
  - Tongue oedema [Recovering/Resolving]
  - Hypotension [Recovering/Resolving]
  - Acidosis [Recovering/Resolving]
  - Hypervolaemia [Recovering/Resolving]
  - Respiratory disorder [Recovering/Resolving]
  - Hypoglycaemia [Recovering/Resolving]
